FAERS Safety Report 9067528 (Version 1)
Quarter: 2013Q1

REPORT INFORMATION
  Report Type: Spontaneous
  Country: US (occurrence: US)
  Receive Date: 20130129
  Receipt Date: 20130129
  Transmission Date: 20140127
  Serious: Yes (Death)
  Sender: FDA-Public Use
  Company Number: PHEH2013US002268

PATIENT
  Age: 66 None
  Sex: Male

DRUGS (1)
  1. GLEEVEC [Suspect]
     Dosage: 100 MG, TWO TABLETS TWICE DAILY
     Route: 048
     Dates: start: 20121228, end: 20121230

REACTIONS (1)
  - Death [Fatal]
